FAERS Safety Report 8241862-X (Version None)
Quarter: 2012Q1

REPORT INFORMATION
  Report Type: 
  Country: None (occurrence: None)
  Receive Date: 20120328
  Receipt Date: 20120319
  Transmission Date: 20120608
  Serious: Yes (Other)
  Sender: FDA-Public Use
  Company Number: US-ASTRAZENECA-2012SE18642

PATIENT
  Age: 38 Year
  Sex: Female
  Weight: 108.9 kg

DRUGS (1)
  1. SEROQUEL XR [Suspect]
     Indication: DEPRESSION
     Route: 048
     Dates: start: 20120227

REACTIONS (4)
  - THERAPEUTIC RESPONSE UNEXPECTED [None]
  - SOMNOLENCE [None]
  - INTENTIONAL SELF-INJURY [None]
  - MEMORY IMPAIRMENT [None]
